FAERS Safety Report 10649334 (Version 2)
Quarter: 2015Q1

REPORT INFORMATION
  Report Type: Spontaneous
  Country: JP (occurrence: None)
  Receive Date: 20141210
  Receipt Date: 20150304
  Transmission Date: 20150720
  Serious: Yes (Other)
  Sender: FDA-Public Use
  Company Number: 2014-20895

PATIENT
  Age: 65 Year
  Sex: Female
  Weight: 55 kg

DRUGS (6)
  1. XYLOCAINE [Concomitant]
     Active Substance: LIDOCAINE HYDROCHLORIDE
  2. GATIFLO (GATIFLOXACIN) [Concomitant]
  3. ISOTONIC SODIUM CHLORIDE SOLUTION (SODIUM CHLORIDE) [Concomitant]
  4. EYLEA [Suspect]
     Active Substance: AFLIBERCEPT
     Indication: AGE-RELATED MACULAR DEGENERATION
     Route: 031
     Dates: start: 20140328
  5. VEGAMOX (MOXIFLOXACIN HYDROCHLORIDE) [Concomitant]
  6. ISODINE (POVIDONE-IODINE) [Concomitant]

REACTIONS (2)
  - Inappropriate schedule of drug administration [None]
  - Angle closure glaucoma [None]

NARRATIVE: CASE EVENT DATE: 20141022
